FAERS Safety Report 5739779-5 (Version None)
Quarter: 2008Q2

REPORT INFORMATION
  Report Type: 
  Country: None (occurrence: None)
  Receive Date: 20080512
  Receipt Date: 20080512
  Transmission Date: 20081010
  Serious: Yes (Other)
  Sender: FDA-Public Use
  Company Number: None

PATIENT
  Age: 38 Year
  Sex: Female
  Weight: 108.8633 kg

DRUGS (1)
  1. PROMETRIUM [Suspect]
     Indication: MENORRHAGIA
     Dosage: 400 MG 1X/DAY PO
     Route: 048
     Dates: start: 20080501, end: 20080508

REACTIONS (7)
  - APATHY [None]
  - BALANCE DISORDER [None]
  - DIZZINESS [None]
  - FEELING ABNORMAL [None]
  - NAUSEA [None]
  - SOMNOLENCE [None]
  - VOMITING [None]
